FAERS Safety Report 16251149 (Version 1)
Quarter: 2019Q2

REPORT INFORMATION
  Report Type: Spontaneous
  Country: US (occurrence: US)
  Receive Date: 20190426
  Receipt Date: 20190426
  Transmission Date: 20190711
  Serious: No
  Sender: FDA-Public Use
  Company Number: None

PATIENT
  Age: 72 Year
  Sex: Female
  Weight: 130.5 kg

DRUGS (2)
  1. LATUDA [Suspect]
     Active Substance: LURASIDONE HYDROCHLORIDE
  2. LISINOPRIL. [Suspect]
     Active Substance: LISINOPRIL
     Indication: DYSPNOEA

REACTIONS (3)
  - Dysgraphia [None]
  - Motor dysfunction [None]
  - Aphasia [None]
